FAERS Safety Report 17906892 (Version 1)
Quarter: 2020Q2

REPORT INFORMATION
  Report Type: Spontaneous
  Country: US (occurrence: US)
  Receive Date: 20200616
  Receipt Date: 20200616
  Transmission Date: 20200714
  Serious: No
  Sender: FDA-Public Use
  Company Number: None

PATIENT
  Sex: Male

DRUGS (1)
  1. BLOCPAIN [Suspect]
     Active Substance: MENTHOL
     Indication: DRUG THERAPY
     Dosage: APPLIED TOPICALLY TO FEET MORNING AND EVENING.

REACTIONS (2)
  - Burns third degree [None]
  - Burning sensation [None]

NARRATIVE: CASE EVENT DATE: 20200610
